FAERS Safety Report 8368870-2 (Version None)
Quarter: 2012Q2

REPORT INFORMATION
  Report Type: 
  Country: None (occurrence: None)
  Receive Date: 20120518
  Receipt Date: 20120514
  Transmission Date: 20120825
  Serious: Yes (Other)
  Sender: FDA-Public Use
  Company Number: RO-ACCORD-013509

PATIENT
  Age: 64 Year
  Sex: Male

DRUGS (2)
  1. CARBOPLATIN [Suspect]
     Indication: PROSTATE CANCER METASTATIC
  2. ETOPOSIDE [Suspect]
     Indication: PROSTATE CANCER METASTATIC

REACTIONS (5)
  - HEPATIC FAILURE [None]
  - FEBRILE NEUTROPENIA [None]
  - RENAL FAILURE ACUTE [None]
  - HEPATIC MASS [None]
  - OFF LABEL USE [None]
